FAERS Safety Report 7176456-0 (Version None)
Quarter: 2010Q4

REPORT INFORMATION
  Report Type: 
  Country: None (occurrence: None)
  Receive Date: 20101220
  Receipt Date: 20101208
  Transmission Date: 20110411
  Serious: Yes (Hospitalization, Other)
  Sender: FDA-Public Use
  Company Number: NL-ELI_LILLY_AND_COMPANY-NL201011004073

PATIENT
  Sex: Female
  Weight: 80 kg

DRUGS (28)
  1. FORTEO [Suspect]
     Indication: OSTEOPOROSIS
     Dosage: 20 UG, DAILY (1/D)
     Route: 058
     Dates: start: 20101006, end: 20101027
  2. BECLOMETHASONE W/FENOTEROL [Concomitant]
  3. BUDESONIDE W/FORMOTEROL FUMARATE [Concomitant]
     Route: 055
  4. BUPRENORPHINE [Concomitant]
     Indication: PAIN
     Dosage: 10 UG, EVERY HOUR
  5. CALCIUM CARBONATE W/COLECALCIFEROL [Concomitant]
     Indication: OSTEOPOROSIS
     Dosage: UNK UNK, DAILY (1/D)
     Route: 048
  6. CLOPIDOGREL [Concomitant]
     Dosage: 75 MG, UNK
  7. DOMPERIDON                         /00498201/ [Concomitant]
     Indication: NAUSEA
     Dosage: 60 MG, UNK
  8. EMEDASTINE [Concomitant]
  9. FUROSEMIDE [Concomitant]
     Indication: FLUID RETENTION
     Dosage: 40 MG, UNK
  10. IBUPROFEN [Concomitant]
     Indication: PAIN
     Dosage: 600 MG, UNK
  11. ISOSORBID MONONITRATE [Concomitant]
     Indication: CARDIAC DISORDER
     Dosage: 30 MG, UNK
  12. IVABRADINE [Concomitant]
     Indication: CARDIAC DISORDER
     Dosage: 5 MG, UNK
  13. LACTULOSE [Concomitant]
     Indication: CONSTIPATION
     Dosage: 670 MG, UNK
  14. MICONAZOLE [Concomitant]
     Indication: FUNGAL INFECTION
     Dosage: UNK, UNK
     Route: 048
  15. NITROGLYCERIN [Concomitant]
     Indication: CARDIAC DISORDER
     Dosage: 0.4 MG, UNK
     Route: 060
  16. NOSCAPINE [Concomitant]
     Indication: NASOPHARYNGITIS
  17. NYSTATINE [Concomitant]
     Indication: LOCALISED INFECTION
     Route: 048
  18. OMEPRAZOLE [Concomitant]
     Indication: ABDOMINAL DISCOMFORT
     Dosage: 40 MG, UNK
  19. CODEINE PHOSPHATE AND ACETAMINOPHEN [Concomitant]
     Indication: PAIN
  20. PREDNISONE [Concomitant]
     Dosage: 5 MG, UNK
  21. PREGABALIN [Concomitant]
     Indication: PAIN
     Dosage: 75 MG, UNK
  22. SALBUTAMOL [Concomitant]
     Route: 055
  23. SALBUTAMOL [Concomitant]
     Route: 055
  24. SALBUTAMOL SULFATE W/IPRATROPIUM [Concomitant]
  25. SALMETEROL/FLUTICASONPROPIONAAT [Concomitant]
  26. SPIRONOLACTONE [Concomitant]
     Dosage: 25 MG, UNK
  27. TEMAZEPAM [Concomitant]
     Indication: INSOMNIA
     Dosage: 10 MG, UNK
  28. TIOTROPIUM [Concomitant]
     Dosage: 2.5 UG, UNK

REACTIONS (5)
  - BACK PAIN [None]
  - CARDIAC FAILURE [None]
  - DYSPNOEA [None]
  - LUNG DISORDER [None]
  - NEURALGIA [None]
